FAERS Safety Report 12085681 (Version 1)
Quarter: 2016Q1

REPORT INFORMATION
  Report Type: Spontaneous
  Country: US (occurrence: US)
  Receive Date: 20160217
  Receipt Date: 20160217
  Transmission Date: 20160526
  Serious: Yes (Other)
  Sender: FDA-Public Use
  Company Number: US-AMGEN-USASP2016017430

PATIENT
  Age: 57 Year
  Sex: Male

DRUGS (8)
  1. METHOTREXATE [Concomitant]
     Active Substance: METHOTREXATE
  2. FISH OIL [Concomitant]
     Active Substance: FISH OIL
  3. SAW PALMETTO                       /00833501/ [Concomitant]
     Active Substance: SAW PALMETTO
  4. GLUCOSAMINE CHONDROITIN            /08437701/ [Concomitant]
  5. ENBREL [Suspect]
     Active Substance: ETANERCEPT
     Indication: RHEUMATOID ARTHRITIS
     Dosage: 50 MG, QWK
     Route: 058
  6. BENICAR [Concomitant]
     Active Substance: OLMESARTAN MEDOXOMIL
  7. FOLIC ACID. [Concomitant]
     Active Substance: FOLIC ACID
  8. COCONUT OIL [Concomitant]
     Active Substance: COCONUT OIL

REACTIONS (2)
  - Rheumatoid arthritis [Unknown]
  - Sinusitis [Recovering/Resolving]
